FAERS Safety Report 7122790-X (Version None)
Quarter: 2010Q4

REPORT INFORMATION
  Report Type: 
  Country: None (occurrence: None)
  Receive Date: 20101124
  Receipt Date: 20101111
  Transmission Date: 20110411
  Serious: Yes (Other)
  Sender: FDA-Public Use
  Company Number: TW-GENENTECH-308437

PATIENT
  Sex: Male

DRUGS (1)
  1. LUCENTIS [Suspect]
     Indication: EYE HAEMORRHAGE
     Dosage: 0.5 MG, 1/MONTH
     Route: 031
     Dates: start: 20101015

REACTIONS (1)
  - RETINAL HAEMORRHAGE [None]
